FAERS Safety Report 6873634-2 (Version None)
Quarter: 2010Q3

REPORT INFORMATION
  Report Type: 
  Country: None (occurrence: None)
  Receive Date: 20100723
  Receipt Date: 20090318
  Transmission Date: 20110219
  Serious: Yes (Other)
  Sender: FDA-Public Use
  Company Number: US-PFIZER INC-2009160605

PATIENT
  Sex: Female
  Weight: 72.562 kg

DRUGS (2)
  1. CHANTIX [Suspect]
     Indication: SMOKING CESSATION THERAPY
     Dosage: UNK
     Route: 048
     Dates: start: 20081101, end: 20081110
  2. CHANTIX [Suspect]
     Dosage: UNK
     Route: 048
     Dates: start: 20081201, end: 20081201

REACTIONS (2)
  - VIITH NERVE PARALYSIS [None]
  - WEIGHT INCREASED [None]
